FAERS Safety Report 13889910 (Version 1)
Quarter: 2017Q3

REPORT INFORMATION
  Report Type: Report from Study
  Country: None (occurrence: CH)
  Receive Date: 20170822
  Receipt Date: 20170822
  Transmission Date: 20171127
  Serious: Yes (Other)
  Sender: FDA-Public Use
  Company Number: CH-ABBVIE-17K-151-2073695-00

PATIENT
  Age: 67 Year
  Sex: Female
  Weight: 68 kg

DRUGS (2)
  1. PARACETAMOL [Concomitant]
     Active Substance: ACETAMINOPHEN
     Indication: PRODUCT USED FOR UNKNOWN INDICATION
  2. HUMIRA [Suspect]
     Active Substance: ADALIMUMAB
     Indication: PRODUCT USED FOR UNKNOWN INDICATION
     Route: 058
     Dates: start: 20160704, end: 20160705

REACTIONS (4)
  - Nausea [Recovered/Resolved]
  - Visual impairment [Recovered/Resolved]
  - Vertigo [Recovered/Resolved]
  - Eustachian tube disorder [Unknown]

NARRATIVE: CASE EVENT DATE: 201607
